FAERS Safety Report 8797037 (Version 6)
Quarter: 2012Q4

REPORT INFORMATION
  Report Type: Report from Study
  Country: US (occurrence: US)
  Receive Date: 20120920
  Receipt Date: 20121121
  Transmission Date: 20130627
  Serious: Yes (Hospitalization, Other)
  Sender: FDA-Public Use
  Company Number: US-ASTELLAS-2012US007798

PATIENT
  Age: 45 None
  Sex: Male
  Weight: 82 kg

DRUGS (25)
  1. ERLOTINIB TABLET [Suspect]
     Indication: NON-SMALL CELL LUNG CANCER STAGE IV
     Dosage: 150 mg, UID/QD
     Route: 048
     Dates: start: 20120313, end: 20120910
  2. ERLOTINIB TABLET [Suspect]
     Dosage: 150 mg, UID/QD
     Route: 048
  3. DASATINIB [Suspect]
     Indication: NON-SMALL CELL LUNG CANCER
     Dosage: 20 mg, UID/QD
     Route: 048
     Dates: start: 20120313, end: 20120910
  4. DASATINIB [Suspect]
     Dosage: 50 mg, UID/QD
     Route: 048
     Dates: start: 20120313, end: 20120910
  5. DASATINIB [Suspect]
     Dosage: 20 mg, UID/QD
     Route: 048
     Dates: end: 20121012
  6. DASATINIB [Suspect]
     Dosage: 50 mg, UID/QD
     Route: 048
     Dates: end: 20121012
  7. METHADONE [Suspect]
     Indication: PAIN
     Dosage: UNK
     Route: 037
     Dates: start: 20121003
  8. ACETAMINOPHEN W/HYDROCODONE [Concomitant]
     Indication: PAIN
     Dosage: 10/325mg, 1 DF, q4hrs, prn
     Route: 048
  9. CITALOPRAM [Concomitant]
     Indication: PRODUCT USED FOR UNKNOWN INDICATION
     Dosage: 10 mg, UID/QD
     Route: 048
  10. HYDROMORPHONE [Concomitant]
     Indication: PAIN
     Dosage: 1 mg, Q2 hours, prn
     Route: 040
  11. LEVALBUTEROL [Concomitant]
     Indication: PRODUCT USED FOR UNKNOWN INDICATION
     Dosage: 1.25 mg, Unknown/D
     Route: 055
  12. ONDANSETRON [Concomitant]
     Indication: PRODUCT USED FOR UNKNOWN INDICATION
     Dosage: 8 mg, Q8H prn
     Route: 040
  13. OXYCONTIN [Concomitant]
     Indication: PRODUCT USED FOR UNKNOWN INDICATION
     Dosage: 20 mg, tid
     Route: 048
  14. PANTOPRAZOLE [Concomitant]
     Indication: PRODUCT USED FOR UNKNOWN INDICATION
     Dosage: 40 mg, UID/QD
     Route: 048
  15. PREGABALIN [Concomitant]
     Indication: NEURALGIA
     Dosage: 200 mg, UID/QD
     Route: 048
  16. PREGABALIN [Concomitant]
     Dosage: 1 DF, tid
     Route: 048
     Dates: start: 20120104
  17. SENNOSIDES A+B [Concomitant]
     Indication: CONSTIPATION
     Dosage: 2 DF, bid
     Route: 065
  18. TOPIRAMATE [Concomitant]
     Indication: PRODUCT USED FOR UNKNOWN INDICATION
     Dosage: 50 mg, bid
     Route: 048
  19. ZOLPIDEM [Concomitant]
     Indication: INSOMNIA
     Dosage: 10 mg, QHS, prn
     Route: 048
     Dates: start: 20120720
  20. ARTHROTEC [Concomitant]
     Indication: ARTHRALGIA
     Dosage: 50 mg, Q12 hours
     Route: 048
     Dates: start: 20120409
  21. LEXAPRO [Concomitant]
     Indication: AFFECTIVE DISORDER
     Dosage: 1 DF, QHS
     Route: 048
     Dates: start: 20120608
  22. LOVENOX [Concomitant]
     Indication: PULMONARY EMBOLISM
     Dosage: 120 mg, UID/QD
     Route: 058
     Dates: start: 20121012
  23. SENNA                              /00142201/ [Concomitant]
     Indication: CONSTIPATION
     Dosage: 2 DF, bid
     Route: 048
     Dates: start: 20120319
  24. LYRICA [Concomitant]
     Indication: NEURALGIA
     Dosage: UNK
     Route: 048
     Dates: start: 201204
  25. LUNESTA [Concomitant]
     Indication: SLEEP DISORDER
     Dosage: 2 mg, QHS
     Route: 048

REACTIONS (21)
  - Pain [Recovering/Resolving]
  - Toxicity to various agents [Unknown]
  - Lung adenocarcinoma [Recovering/Resolving]
  - Dyspnoea [Recovering/Resolving]
  - Nausea [Recovered/Resolved]
  - Vomiting [Recovered/Resolved]
  - Asthenia [Unknown]
  - Pyrexia [Recovered/Resolved]
  - Pulmonary embolism [Recovering/Resolving]
  - Flushing [Recovered/Resolved]
  - Petechiae [Recovered/Resolved]
  - Decreased appetite [Recovered/Resolved]
  - Fatigue [Recovered/Resolved]
  - Myalgia [Recovered/Resolved]
  - Productive cough [Recovered/Resolved]
  - Rash [Unknown]
  - Confusional state [Recovered/Resolved]
  - Pain [Recovering/Resolving]
  - Chest pain [Recovering/Resolving]
  - Pneumothorax [Recovered/Resolved]
  - Bradycardia [Recovering/Resolving]
